FAERS Safety Report 7076731 (Version 5)
Quarter: 2018Q3

REPORT INFORMATION
  Report Type: Report from Study
  Country: JP (occurrence: JP)
  Receive Date: 20090810
  Receipt Date: 20180917
  Transmission Date: 20181010
  Serious: Yes (Death)
  Sender: FDA-Public Use
  Company Number: PHHY2009JP31773

PATIENT
  Age: 48 Year
  Sex: Female

DRUGS (14)
  1. TASIGNA [Suspect]
     Active Substance: NILOTINIB
     Dosage: 200 MG, BID
     Route: 048
     Dates: start: 20090623, end: 20090914
  2. PREDONINE [Concomitant]
     Active Substance: PREDNISOLONE
     Indication: CHRONIC MYELOID LEUKAEMIA
     Dosage: 40 MG, UNK
     Route: 048
     Dates: start: 20090623, end: 20091225
  3. TASIGNA [Suspect]
     Active Substance: NILOTINIB
     Dosage: 200 MG, QD
     Route: 048
     Dates: start: 20090915, end: 20091220
  4. FOSCAVIR [Concomitant]
     Active Substance: FOSCARNET SODIUM
     Indication: CHRONIC MYELOID LEUKAEMIA
     Dosage: 7.2 G, UNK
     Route: 042
     Dates: start: 20090623, end: 20090630
  5. ZOVIRAX [Concomitant]
     Active Substance: ACYCLOVIR
     Indication: CHRONIC MYELOID LEUKAEMIA
     Dosage: 800 MG, UNK
     Route: 048
     Dates: start: 20090209, end: 20091220
  6. DIFLUCAN [Concomitant]
     Active Substance: FLUCONAZOLE
     Indication: CHRONIC MYELOID LEUKAEMIA
     Dosage: 200 MG, UNK
     Route: 048
     Dates: start: 20090209, end: 20091220
  7. DOGMATYL [Concomitant]
     Active Substance: SULPIRIDE
     Indication: CHRONIC MYELOID LEUKAEMIA
     Dosage: 150 MG, UNK
     Route: 048
     Dates: start: 20090207, end: 20091220
  8. ZOVIRAX [Concomitant]
     Active Substance: ACYCLOVIR
     Dosage: 600 MG, UNK
     Route: 048
  9. NEOMALLERMIN TR [Concomitant]
     Indication: CHRONIC MYELOID LEUKAEMIA
     Dosage: 6 MG, UNK
     Route: 048
     Dates: start: 20090527, end: 20091220
  10. BAKTAR [Concomitant]
     Active Substance: SULFAMETHOXAZOLE\TRIMETHOPRIM
     Indication: CHRONIC MYELOID LEUKAEMIA
     Dosage: 4 DF, UNK
     Route: 048
     Dates: start: 20090623, end: 20091220
  11. PREDONINE [Concomitant]
     Active Substance: PREDNISOLONE
     Dosage: 30 MG, UNK
     Route: 048
     Dates: start: 20090623
  12. TASIGNA [Suspect]
     Active Substance: NILOTINIB
     Indication: CHRONIC MYELOID LEUKAEMIA
     Dosage: 400 MG, BID
     Route: 048
     Dates: start: 20090225, end: 20090608
  13. TAKEPRON [Concomitant]
     Active Substance: LANSOPRAZOLE
     Indication: CHRONIC MYELOID LEUKAEMIA
     Dosage: 15 MG, UNK
     Route: 048
     Dates: start: 20090209, end: 20090624
  14. MAXIPIME [Concomitant]
     Active Substance: CEFEPIME HYDROCHLORIDE
     Indication: CHRONIC MYELOID LEUKAEMIA
     Dosage: UNK DL, UNK
     Route: 041
     Dates: start: 20090210, end: 20090216

REACTIONS (6)
  - Concomitant disease aggravated [Fatal]
  - Respiratory failure [Fatal]
  - Lung disorder [Fatal]
  - Graft versus host disease [Fatal]
  - Hyperlipidaemia [Not Recovered/Not Resolved]
  - Electrocardiogram QT prolonged [Recovered/Resolved]

NARRATIVE: CASE EVENT DATE: 20090324
